FAERS Safety Report 4951585-8 (Version None)
Quarter: 2006Q1

REPORT INFORMATION
  Report Type: 
  Country: None (occurrence: None)
  Receive Date: 20060317
  Receipt Date: 20060313
  Transmission Date: 20060701
  Serious: Yes (Death, Life-Threatening, Hospitalization)
  Sender: FDA-Public Use
  Company Number: 430010M03USA

PATIENT
  Age: 42 Year
  Sex: Male
  Weight: 68 kg

DRUGS (4)
  1. NOVANTRONE [Suspect]
     Indication: SECONDARY PROGRESSIVE MULTIPLE SCLEROSIS
     Dosage: 24.2 MG, 1 IN 3 MONTHS
     Dates: start: 20010301, end: 20020506
  2. ZOLOFT [Concomitant]
  3. BACLOFEN [Concomitant]
  4. DETROL [Concomitant]

REACTIONS (11)
  - ACUTE MYELOID LEUKAEMIA [None]
  - CHROMOSOME ABNORMALITY [None]
  - DRUG INEFFECTIVE [None]
  - KARYOTYPE ANALYSIS ABNORMAL [None]
  - LEUKAEMIA CUTIS [None]
  - LEUKAEMIA RECURRENT [None]
  - MALIGNANT NEOPLASM PROGRESSION [None]
  - SEPSIS [None]
  - SKIN LESION [None]
  - THROMBOCYTOPENIA [None]
  - TRISOMY 8 [None]
